FAERS Safety Report 17435945 (Version 2)
Quarter: 2020Q1

REPORT INFORMATION
  Report Type: Spontaneous
  Country: FR (occurrence: FR)
  Receive Date: 20200219
  Receipt Date: 20200221
  Transmission Date: 20200409
  Serious: Yes (Hospitalization, Other)
  Sender: FDA-Public Use
  Company Number: FR-PFIZER INC-2020071578

PATIENT
  Age: 78 Year
  Sex: Female
  Weight: 58 kg

DRUGS (10)
  1. PRAVASTATIN ARROW [Concomitant]
     Active Substance: PRAVASTATIN SODIUM
     Dosage: 10 MG, 1X/DAY
     Route: 048
  2. ATENOLOL ARROW [Concomitant]
     Active Substance: ATENOLOL
     Indication: HYPERTENSION
     Dosage: 100 MG, 1X/DAY
     Route: 048
  3. FORMOTEROL MYLAN [Concomitant]
     Active Substance: FORMOTEROL
     Dosage: 24 UG, 1X/DAY
     Route: 048
  4. ELIQUIS [Concomitant]
     Active Substance: APIXABAN
     Dosage: 10 MG, 1X/DAY (QD)
     Route: 048
  5. ASPIRIN PROTECT [Concomitant]
     Active Substance: ASPIRIN
     Dosage: 100 MG, 1X/DAY
     Route: 048
  6. DOLIPRANE [Concomitant]
     Active Substance: ACETAMINOPHEN
     Dosage: 1500 MG, 1X/DAY
     Route: 048
  7. CORDARONE [Suspect]
     Active Substance: AMIODARONE HYDROCHLORIDE
     Indication: ATRIAL FIBRILLATION
     Dosage: 1800 MG, 1X/DAY
     Route: 048
     Dates: start: 20200111, end: 20200113
  8. EXFORGE [Concomitant]
     Active Substance: AMLODIPINE BESYLATE\VALSARTAN
     Indication: HYPERTENSION
     Dosage: 1 DF, 1X/DAY
     Route: 048
  9. PAROXETINE ARROW [Concomitant]
     Active Substance: PAROXETINE
     Dosage: 20 MG, 1X/DAY
     Route: 048
  10. PREGABALINE MYLAN [Concomitant]
     Active Substance: PREGABALIN
     Dosage: 150 MG, 1X/DAY
     Route: 048

REACTIONS (7)
  - Vertigo [Recovered/Resolved]
  - Nausea [Recovered/Resolved]
  - Product prescribing error [Unknown]
  - Hypothermia [Recovered/Resolved]
  - Thymus disorder [Recovered/Resolved]
  - Cough [Recovered/Resolved]
  - Transcription medication error [Unknown]

NARRATIVE: CASE EVENT DATE: 20200111
